FAERS Safety Report 10245974 (Version 1)
Quarter: 2014Q2

REPORT INFORMATION
  Report Type: Spontaneous
  Country: US (occurrence: US)
  Receive Date: 20140619
  Receipt Date: 20140619
  Transmission Date: 20141212
  Serious: Yes (Death)
  Sender: FDA-Public Use
  Company Number: PHHY2014US071762

PATIENT
  Age: 72 Year
  Sex: Female

DRUGS (4)
  1. OCTREOTIDE [Suspect]
  2. METHYLPREDNISOLONE [Suspect]
     Route: 065
  3. CISPLATIN [Suspect]
     Indication: CHEMOTHERAPY
  4. ETOPOSIDE [Suspect]
     Indication: CHEMOTHERAPY

REACTIONS (4)
  - Hepatic failure [Fatal]
  - Drug resistance [Unknown]
  - Musculoskeletal pain [Unknown]
  - Drug ineffective [Unknown]
